FAERS Safety Report 13973898 (Version 2)
Quarter: 2017Q3

REPORT INFORMATION
  Report Type: Spontaneous
  Country: JP (occurrence: JP)
  Receive Date: 20170915
  Receipt Date: 20170921
  Transmission Date: 20171128
  Serious: Yes (Hospitalization)
  Sender: FDA-Public Use
  Company Number: JP-AMGEN-JPNSP2017139990

PATIENT
  Age: 48 Year
  Sex: Female

DRUGS (2)
  1. G-LASTA [Suspect]
     Active Substance: PEGFILGRASTIM
     Indication: PRODUCT USED FOR UNKNOWN INDICATION
     Dosage: UNK
     Route: 058
     Dates: start: 20170812
  2. TRABECTEDIN [Concomitant]
     Active Substance: TRABECTEDIN
     Indication: OSTEOSARCOMA
     Dosage: 1.9 MG, UNK
     Route: 041
     Dates: start: 20170810

REACTIONS (3)
  - Acute respiratory distress syndrome [Unknown]
  - Hypoalbuminaemia [Not Recovered/Not Resolved]
  - Generalised oedema [Unknown]

NARRATIVE: CASE EVENT DATE: 20170814
